FAERS Safety Report 6883521-1 (Version None)
Quarter: 2010Q3

REPORT INFORMATION
  Report Type: 
  Country: None (occurrence: None)
  Receive Date: 20100727
  Receipt Date: 20100713
  Transmission Date: 20110219
  Serious: Yes (Other)
  Sender: FDA-Public Use
  Company Number: AUR-APL-2010-01658

PATIENT
  Age: 82 Year
  Sex: Female

DRUGS (4)
  1. BISOPROLOL [Suspect]
     Dosage: 2.5 MG, DAILY
  2. LISINOPRIL [Suspect]
     Dosage: 20 MG, DAILY
  3. CO-AMILOFRUSE 5/40 [Suspect]
     Dosage: DAILY
  4. ASPIRIN [Concomitant]

REACTIONS (9)
  - ABDOMINAL DISTENSION [None]
  - CHEST DISCOMFORT [None]
  - ERUCTATION [None]
  - FALL [None]
  - HEADACHE [None]
  - HYPOTENSION [None]
  - INJURY [None]
  - LOSS OF CONSCIOUSNESS [None]
  - VISION BLURRED [None]
